FAERS Safety Report 24125653 (Version 1)
Quarter: 2024Q3

REPORT INFORMATION
  Report Type: Report from Study
  Country: US (occurrence: US)
  Receive Date: 20240723
  Receipt Date: 20240723
  Transmission Date: 20241017
  Serious: No
  Sender: ACADIA PHARMACEUTICALS
  Company Number: US-ACADIA PHARMACEUTICALS INC.-ACA-2024-PIM-003119

PATIENT
  Sex: Female

DRUGS (23)
  1. NUPLAZID [Suspect]
     Active Substance: PIMAVANSERIN TARTRATE
     Indication: Psychotic disorder
     Dosage: 34 MILLIGRAM, QD
     Route: 048
     Dates: start: 202404
  2. NUPLAZID [Suspect]
     Active Substance: PIMAVANSERIN TARTRATE
     Indication: Delusion
  3. HYDROCHLOROTHIAZIDE [Concomitant]
     Active Substance: HYDROCHLOROTHIAZIDE
  4. CELECOXIB [Concomitant]
     Active Substance: CELECOXIB
  5. FAMOTIDINE [Concomitant]
     Active Substance: FAMOTIDINE
  6. ONDANSETRON [Concomitant]
     Active Substance: ONDANSETRON
  7. LOSARTAN POTASSIUM [Concomitant]
     Active Substance: LOSARTAN POTASSIUM
  8. CEVIMELINE [Concomitant]
     Active Substance: CEVIMELINE
  9. ATORVASTATIN CALCIUM [Concomitant]
     Active Substance: ATORVASTATIN CALCIUM
  10. TYLENOL [Concomitant]
     Active Substance: ACETAMINOPHEN
  11. GABAPENTIN [Concomitant]
     Active Substance: GABAPENTIN
  12. VITAMIN C [Concomitant]
     Active Substance: ASCORBIC ACID
  13. MIRALAX [Concomitant]
     Active Substance: POLYETHYLENE GLYCOL 3350
  14. CLONAZEPAM [Concomitant]
     Active Substance: CLONAZEPAM
  15. BUSPIRONE [Concomitant]
     Active Substance: BUSPIRONE HYDROCHLORIDE
  16. PEPCID COMPLETE [Concomitant]
     Active Substance: CALCIUM CARBONATE\FAMOTIDINE\MAGNESIUM HYDROXIDE
  17. VITAMIN D3 [Concomitant]
     Active Substance: CHOLECALCIFEROL
  18. BIOTIN [Concomitant]
     Active Substance: BIOTIN
  19. VITAMINS NOS [Concomitant]
     Active Substance: VITAMINS
  20. FLUOXETINE [Concomitant]
     Active Substance: FLUOXETINE HYDROCHLORIDE
  21. MELATONIN [Concomitant]
     Active Substance: MELATONIN
  22. RYTARY [Concomitant]
     Active Substance: CARBIDOPA\LEVODOPA
  23. GOCOVRI [Concomitant]
     Active Substance: AMANTADINE

REACTIONS (1)
  - Headache [Unknown]
